FAERS Safety Report 9615306 (Version 1)
Quarter: 2013Q4

REPORT INFORMATION
  Report Type: Spontaneous
  Country: US (occurrence: None)
  Receive Date: 20131010
  Receipt Date: 20131010
  Transmission Date: 20140711
  Serious: No
  Sender: FDA-Public Use
  Company Number: None

PATIENT
  Sex: Female
  Weight: 41.28 kg

DRUGS (1)
  1. CONCERTA [Suspect]
     Indication: ATTENTION DEFICIT/HYPERACTIVITY DISORDER
     Route: 048

REACTIONS (6)
  - Decreased appetite [None]
  - Sleep disorder [None]
  - Weight decreased [None]
  - Gastrointestinal disorder [None]
  - Therapeutic response unexpected with drug substitution [None]
  - Product substitution issue [None]
